FAERS Safety Report 4292487-2 (Version None)
Quarter: 2004Q1

REPORT INFORMATION
  Report Type: 
  Country: None (occurrence: None)
  Receive Date: 20040126
  Receipt Date: 20031007
  Transmission Date: 20041129
  Serious: No
  Sender: FDA-Public Use
  Company Number: USA031049249

PATIENT
  Age: 44 Year
  Sex: Female
  Weight: 53 kg

DRUGS (6)
  1. FORTEO [Suspect]
     Indication: OSTEOPOROSIS
     Dates: start: 20030301
  2. NEXIUM [Concomitant]
  3. NASONEX [Concomitant]
  4. GRAPE SEED EXTRACT [Concomitant]
  5. BEXTRA [Concomitant]
  6. ZYRTEC-D 12 HOUR [Concomitant]

REACTIONS (5)
  - ASTHENIA [None]
  - BLOOD PHOSPHORUS DECREASED [None]
  - EAR CONGESTION [None]
  - EAR INFECTION [None]
  - PARANASAL SINUS HYPERSECRETION [None]
